FAERS Safety Report 6508309-2 (Version None)
Quarter: 2009Q4

REPORT INFORMATION
  Report Type: 
  Country: None (occurrence: None)
  Receive Date: 20091221
  Receipt Date: 20081121
  Transmission Date: 20100525
  Serious: No
  Sender: FDA-Public Use
  Company Number: US-ASTRAZENECA-2008UW13468

PATIENT
  Sex: Female
  Weight: 90.7 kg

DRUGS (6)
  1. CRESTOR [Suspect]
     Indication: BLOOD CHOLESTEROL INCREASED
     Dosage: 10 MG
     Route: 048
     Dates: start: 20080201, end: 20080701
  2. PREMARIN [Concomitant]
  3. ACIPHEX [Concomitant]
  4. ASCORBIC ACID [Concomitant]
  5. XYLATAN [Concomitant]
     Route: 047
  6. AZOPT [Concomitant]
     Route: 047

REACTIONS (6)
  - ABDOMINAL PAIN [None]
  - ARTHRALGIA [None]
  - BLOOD TEST [None]
  - GAIT DISTURBANCE [None]
  - ILL-DEFINED DISORDER [None]
  - RENAL PAIN [None]
